FAERS Safety Report 22239162 (Version 1)
Quarter: 2023Q2

REPORT INFORMATION
  Report Type: Spontaneous
  Country: US (occurrence: US)
  Receive Date: 20230421
  Receipt Date: 20230421
  Transmission Date: 20230721
  Serious: Yes (Other)
  Sender: FDA-Public Use
  Company Number: US-HORIZON THERAPEUTICS-HZN-2023-002940

PATIENT

DRUGS (6)
  1. PREDNISONE [Suspect]
     Active Substance: PREDNISONE
     Indication: Immunosuppression
     Dosage: 10 MG
     Route: 065
  2. TACROLIMUS [Concomitant]
     Active Substance: TACROLIMUS
     Indication: Immunosuppression
     Dosage: 10-12NG/ML
  3. TACROLIMUS [Concomitant]
     Active Substance: TACROLIMUS
     Dosage: 8-10NG/ML
  4. MYCOPHENOLIC ACID [Concomitant]
     Active Substance: MYCOPHENOLIC ACID
     Indication: Immunosuppression
     Dosage: 500 MG
  5. BELATACEPT [Concomitant]
     Active Substance: BELATACEPT
     Indication: Immunosuppression
     Dosage: UNK UNK, MONTHLY, ABOUT 8 MONTHS
  6. VORICONAZOLE [Concomitant]
     Active Substance: VORICONAZOLE
     Dosage: LEVEL RANGED 2.9-4.1 MCG/M

REACTIONS (2)
  - Alternaria infection [Unknown]
  - Fungal skin infection [Unknown]
